FAERS Safety Report 5790130-4 (Version None)
Quarter: 2008Q2

REPORT INFORMATION
  Report Type: 
  Country: None (occurrence: None)
  Receive Date: 20080626
  Receipt Date: 20080325
  Transmission Date: 20081010
  Serious: No
  Sender: FDA-Public Use
  Company Number: A0685562A

PATIENT
  Age: 53 Year
  Sex: Female
  Weight: 103.6 kg

DRUGS (1)
  1. ALLI [Suspect]
     Route: 048
     Dates: start: 20070927

REACTIONS (7)
  - DRUG INEFFECTIVE [None]
  - EATING DISORDER [None]
  - INFLUENZA [None]
  - MALAISE [None]
  - MOVEMENT DISORDER [None]
  - STEATORRHOEA [None]
  - WEIGHT INCREASED [None]
